FAERS Safety Report 18595720 (Version 3)
Quarter: 2021Q3

REPORT INFORMATION
  Report Type: Report from Study
  Country: US (occurrence: US)
  Receive Date: 20201209
  Receipt Date: 20210705
  Transmission Date: 20211014
  Serious: Yes (Other)
  Sender: FDA-Public Use
  Company Number: US-TAKEDA-2020TUS054926

PATIENT
  Sex: Female
  Weight: 74 kg

DRUGS (41)
  1. DIPHENHYDRAMINE. [Concomitant]
     Active Substance: DIPHENHYDRAMINE
  2. NIVANEX DMX [Concomitant]
     Active Substance: DEXTROMETHORPHAN HYDROBROMIDE\GUAIFENESIN\PHENYLEPHRINE HYDROCHLORIDE
  3. AMRIX [Concomitant]
     Active Substance: CYCLOBENZAPRINE HYDROCHLORIDE
  4. ATIVAN [Concomitant]
     Active Substance: LORAZEPAM
  5. HYQVIA [Concomitant]
     Active Substance: HUMAN IMMUNOGLOBULIN G\HYALURONIDASE RECOMBINANT HUMAN
  6. CVS ASPIRIN [Concomitant]
     Active Substance: ASPIRIN
  7. OXYCODONE DAIICHI SANKYO [Concomitant]
  8. FLAXSEED [Concomitant]
     Active Substance: FLAX SEED
  9. ABTEI CALCIUM+D3 OSTEO VITAL [Concomitant]
  10. RED YEAST RICE [Concomitant]
     Active Substance: DIETARY SUPPLEMENT
  11. REXULTI [Concomitant]
     Active Substance: BREXPIPRAZOLE
  12. SUCRALFATE. [Concomitant]
     Active Substance: SUCRALFATE
  13. CLARAVIS [Concomitant]
     Active Substance: ISOTRETINOIN
  14. VITAMIN E + MAGNESIUM [Concomitant]
  15. NAPROXEN. [Concomitant]
     Active Substance: NAPROXEN
  16. IMITREX DF [Concomitant]
     Active Substance: SUMATRIPTAN SUCCINATE
  17. GABAPENTIN. [Concomitant]
     Active Substance: GABAPENTIN
  18. SUMAVEL [Concomitant]
     Active Substance: SUMATRIPTAN SUCCINATE
  19. VITAMIN B12 [Concomitant]
     Active Substance: CYANOCOBALAMIN
  20. VITAMIN B6 [Concomitant]
     Active Substance: PYRIDOXINE HYDROCHLORIDE
  21. CUVITRU [Suspect]
     Active Substance: HUMAN IMMUNOGLOBULIN G
     Indication: IMMUNODEFICIENCY COMMON VARIABLE
     Dosage: 15 GRAM, Q2WEEKS
     Route: 058
     Dates: start: 20200807
  22. EPINEPHRINE. [Concomitant]
     Active Substance: EPINEPHRINE
  23. KETOROLAC [Concomitant]
     Active Substance: KETOROLAC TROMETHAMINE
  24. TROMETHAMINE. [Concomitant]
     Active Substance: TROMETHAMINE
  25. BACTRIM [Concomitant]
     Active Substance: SULFAMETHOXAZOLE\TRIMETHOPRIM
  26. FIBERCON [Concomitant]
     Active Substance: CALCIUM POLYCARBOPHIL
  27. COENZYME Q10 [Concomitant]
     Active Substance: DIETARY SUPPLEMENT\UBIDECARENONE
  28. TURMERIC [Concomitant]
     Active Substance: HERBALS\TURMERIC
  29. DOXYCYCLINE. [Concomitant]
     Active Substance: DOXYCYCLINE
  30. VITAMIN C [Concomitant]
     Active Substance: ASCORBIC ACID
  31. MAGNESIUM OXIDE. [Concomitant]
     Active Substance: MAGNESIUM OXIDE
  32. TOPIRAMATE. [Concomitant]
     Active Substance: TOPIRAMATE
  33. TRAZODONE [Concomitant]
     Active Substance: TRAZODONE HYDROCHLORIDE
  34. NORMAL SALINE [Concomitant]
     Active Substance: SODIUM CHLORIDE
  35. MULTIVITAMINS [VITAMINS NOS] [Concomitant]
     Active Substance: VITAMINS
  36. ACETAMINOPHEN. [Concomitant]
     Active Substance: ACETAMINOPHEN
  37. LAMOTRIGINE. [Concomitant]
     Active Substance: LAMOTRIGINE
  38. DESIPRAMINE [Concomitant]
     Active Substance: DESIPRAMINE
  39. MIRALAX [Concomitant]
     Active Substance: POLYETHYLENE GLYCOL 3350
  40. VITAMIN D3 [Concomitant]
     Active Substance: CHOLECALCIFEROL
  41. FOLIC ACID. [Concomitant]
     Active Substance: FOLIC ACID

REACTIONS (4)
  - Bunion operation [Unknown]
  - Tooth abscess [Unknown]
  - Inappropriate schedule of product administration [Unknown]
  - Urinary tract infection [Unknown]
